FAERS Safety Report 21306022 (Version 3)
Quarter: 2023Q1

REPORT INFORMATION
  Report Type: Spontaneous
  Country: JP (occurrence: JP)
  Receive Date: 20220908
  Receipt Date: 20230209
  Transmission Date: 20230417
  Serious: Yes (Other)
  Sender: FDA-Public Use
  Company Number: JP-KYOWAKIRIN-2022AKK013826

PATIENT
  Age: 40 Year
  Sex: Female

DRUGS (3)
  1. PEGFILGRASTIM [Suspect]
     Active Substance: PEGFILGRASTIM
     Indication: Colony stimulating factor therapy
     Dosage: UNK
     Route: 065
  2. PEGFILGRASTIM [Suspect]
     Active Substance: PEGFILGRASTIM
     Dosage: UNK
     Route: 065
  3. FILGRASTIM [Suspect]
     Active Substance: FILGRASTIM
     Indication: Colony stimulating factor therapy
     Dosage: UNK
     Route: 065

REACTIONS (1)
  - Capillary leak syndrome [Unknown]
